FAERS Safety Report 6674118-7 (Version None)
Quarter: 2010Q2

REPORT INFORMATION
  Report Type: 
  Country: None (occurrence: None)
  Receive Date: 20100409
  Receipt Date: 20100308
  Transmission Date: 20101027
  Serious: Yes (Hospitalization)
  Sender: FDA-Public Use
  Company Number: ES-BRISTOL-MYERS SQUIBB COMPANY-15051220

PATIENT
  Age: 48 Year
  Sex: Male

DRUGS (5)
  1. CARBIDOPA + LEVODOPA [Suspect]
     Indication: PARKINSON'S DISEASE
     Dosage: 1DF-250-1000 MG/D
     Route: 048
  2. AMANTADINE HCL CAPS [Suspect]
     Indication: PARKINSON'S DISEASE
     Route: 048
  3. ENTACAPONE [Suspect]
     Indication: PARKINSON'S DISEASE
     Dosage: TABS
     Route: 048
  4. ROPINIROLE [Suspect]
     Indication: PARKINSON'S DISEASE
     Dosage: CAPS
     Route: 048
  5. SELEGILINE HCL [Suspect]
     Indication: PARKINSON'S DISEASE
     Dosage: CAPS
     Route: 048

REACTIONS (2)
  - DOPAMINE DYSREGULATION SYNDROME [None]
  - DRUG ABUSE [None]
